FAERS Safety Report 5337549-3 (Version None)
Quarter: 2007Q2

REPORT INFORMATION
  Report Type: 
  Country: None (occurrence: None)
  Receive Date: 20070524
  Receipt Date: 20070509
  Transmission Date: 20071010
  Serious: Yes (Other)
  Sender: FDA-Public Use
  Company Number: 2007S1004084

PATIENT
  Age: 55 Year
  Sex: Male
  Weight: 83.4619 kg

DRUGS (13)
  1. FENTANYL TRANSDERMAL SYSTEM [Suspect]
     Indication: OSTEOARTHRITIS
     Dosage: 100 UG/HR; X1; TRANSDERMAL
     Route: 062
     Dates: start: 20070420, end: 20070423
  2. FENTANYL TRANSDERMAL SYSTEM [Suspect]
     Indication: PAIN
     Dosage: 100 UG/HR; X1; TRANSDERMAL
     Route: 062
     Dates: start: 20070420, end: 20070423
  3. CYMBALTA [Concomitant]
  4. LEVOTHYROXINE SODIUM [Concomitant]
  5. KLONOPIN [Concomitant]
  6. LIPITOR [Concomitant]
  7. ASPIRIN [Concomitant]
  8. VICODIN [Concomitant]
  9. DILTIAZEM [Concomitant]
  10. . [Concomitant]
  11. . [Concomitant]
  12. . [Concomitant]
  13. . [Concomitant]

REACTIONS (11)
  - ANXIETY [None]
  - DIARRHOEA [None]
  - FEELING HOT AND COLD [None]
  - FORMICATION [None]
  - HYPERHIDROSIS [None]
  - INSOMNIA [None]
  - MALAISE [None]
  - NAUSEA [None]
  - PAIN [None]
  - PAIN IN EXTREMITY [None]
  - TREMOR [None]
